FAERS Safety Report 6650327-8 (Version None)
Quarter: 2010Q1

REPORT INFORMATION
  Report Type: 
  Country: None (occurrence: None)
  Receive Date: 20100325
  Receipt Date: 20100317
  Transmission Date: 20100710
  Serious: Yes (Other)
  Sender: FDA-Public Use
  Company Number: PHHY2010FR16980

PATIENT
  Sex: Male

DRUGS (7)
  1. ZOMETA [Suspect]
     Dosage: UNK
     Dates: start: 20081110
  2. LEUPROLIDE ACETATE [Concomitant]
     Indication: NEOPLASM MALIGNANT
     Dosage: 12.5 MG, EVERY 3 MONTHS
     Dates: start: 20090201
  3. PREVISCAN [Concomitant]
     Indication: PULMONARY EMBOLISM
     Dosage: 0.5 DF AND 3/4 DF EVERY DAY ALTERNATIVELY
     Dates: start: 20090101
  4. CYCLOPHOSPHAMIDE [Concomitant]
     Dosage: 50 MG DAILY
     Dates: start: 20081101, end: 20091001
  5. OXYCODONE HCL [Concomitant]
     Dosage: 6 DF, QD
     Dates: start: 20081101
  6. OXYCONTIN [Concomitant]
     Dosage: 1 DF, BID
     Dates: start: 20081101
  7. KETOCONAZOLE [Concomitant]
     Dosage: 200 MG, BID
     Dates: start: 20091023, end: 20091027

REACTIONS (3)
  - OSTEONECROSIS [None]
  - TOOTH EXTRACTION [None]
  - TOOTH INFECTION [None]
